FAERS Safety Report 9494405 (Version 2)
Quarter: 2013Q3

REPORT INFORMATION
  Report Type: Spontaneous
  Country: US (occurrence: None)
  Receive Date: 20130828
  Receipt Date: 20130916
  Transmission Date: 20140515
  Serious: Yes (Death, Other)
  Sender: FDA-Public Use
  Company Number: 1865314

PATIENT
  Age: 67 Year
  Sex: Female
  Weight: 89.09 kg

DRUGS (6)
  1. DOCETAXEL [Suspect]
     Indication: PRODUCT USED FOR UNKNOWN INDICATION
     Dosage: CYCLICAL
     Route: 042
     Dates: start: 20130729, end: 20130729
  2. (CYCLOPHOSPHAMIDE) [Concomitant]
     Indication: PRODUCT USED FOR UNKNOWN INDICATION
  3. (ALOXI) [Concomitant]
  4. (DEXAMETHASONE) [Concomitant]
  5. (EMEND /01627301/) [Concomitant]
  6. (NEULASTA) [Concomitant]

REACTIONS (10)
  - Neutropenia [None]
  - Abdominal pain [None]
  - Colitis ischaemic [None]
  - Blastomycosis [None]
  - Fungaemia [None]
  - Sepsis [None]
  - Shock [None]
  - Intestinal perforation [None]
  - Blood creatinine increased [None]
  - Dysuria [None]
